FAERS Safety Report 16158504 (Version 1)
Quarter: 2019Q2

REPORT INFORMATION
  Report Type: Spontaneous
  Country: US (occurrence: US)
  Receive Date: 20190403
  Receipt Date: 20190403
  Transmission Date: 20190711
  Serious: Yes (Disabling)
  Sender: FDA-Public Use
  Company Number: None

PATIENT
  Age: 47 Year
  Sex: Female
  Weight: 117.9 kg

DRUGS (7)
  1. LORATADINE. [Concomitant]
     Active Substance: LORATADINE
  2. MULTI VITAMIN [Concomitant]
     Active Substance: VITAMINS
  3. LOSARTAN HTCZ 50/12.5 [Suspect]
     Active Substance: HYDROCHLOROTHIAZIDE\LOSARTAN
     Indication: HYPERTENSION
     Dosage: ?          QUANTITY:1 TABLET(S);?
     Route: 048
  4. HYDROCHLOTHIAZIDE [Concomitant]
     Active Substance: HYDROCHLOROTHIAZIDE
  5. AMLODOPINE [Concomitant]
     Active Substance: AMLODIPINE BESYLATE
  6. LCARC [Concomitant]
  7. NASONEX [Concomitant]
     Active Substance: MOMETASONE FUROATE

REACTIONS (21)
  - Secretion discharge [None]
  - Fatigue [None]
  - Dyspnoea [None]
  - Hypoaesthesia [None]
  - Vaginal haemorrhage [None]
  - Menorrhagia [None]
  - Vein rupture [None]
  - Dizziness [None]
  - Chest pain [None]
  - Back pain [None]
  - Disorientation [None]
  - Headache [None]
  - Skin discolouration [None]
  - Hypoacusis [None]
  - Ear congestion [None]
  - Poor peripheral circulation [None]
  - Neck pain [None]
  - Contusion [None]
  - Cough [None]
  - Visual impairment [None]
  - Cardiac flutter [None]

NARRATIVE: CASE EVENT DATE: 20181226
